FAERS Safety Report 4889381-2 (Version None)
Quarter: 2006Q1

REPORT INFORMATION
  Report Type: 
  Country: None (occurrence: None)
  Receive Date: 20060124
  Receipt Date: 20050615
  Transmission Date: 20060701
  Serious: No
  Sender: FDA-Public Use
  Company Number: US-GLAXOSMITHKLINE-A0562811A

PATIENT
  Age: 67 Year
  Sex: Female

DRUGS (2)
  1. HYCAMTIN [Suspect]
     Dosage: 3MGM2 WEEKLY
     Route: 042
  2. NO CONCURRENT MEDICATION [Concomitant]

REACTIONS (1)
  - DYSPNOEA [None]
